FAERS Safety Report 5299655-1 (Version None)
Quarter: 2007Q1

REPORT INFORMATION
  Report Type: 
  Country: None (occurrence: None)
  Receive Date: 20070201
  Receipt Date: 20061101
  Transmission Date: 20070707
  Serious: No
  Sender: FDA-Public Use
  Company Number: 2006PV024378

PATIENT
  Age: 63 Year
  Sex: Male
  Weight: 106.5953 kg

DRUGS (4)
  1. BYETTA [Suspect]
     Indication: DIABETES MELLITUS NON-INSULIN-DEPENDENT
     Dosage: 5 MCG;QPM;SC
     Route: 058
     Dates: start: 20060101
  2. AMARYL [Concomitant]
  3. AVANDIA [Concomitant]
  4. ACEON [Concomitant]

REACTIONS (6)
  - ANOREXIA [None]
  - DRUG INEFFECTIVE [None]
  - DRY MOUTH [None]
  - FEELING JITTERY [None]
  - TREMOR [None]
  - WEIGHT DECREASED [None]
